FAERS Safety Report 18337826 (Version 1)
Quarter: 2020Q4

REPORT INFORMATION
  Report Type: Report from Study
  Country: BR (occurrence: BR)
  Receive Date: 20201002
  Receipt Date: 20201002
  Transmission Date: 20210113
  Serious: Yes (Death, Hospitalization, Other)
  Sender: FDA-Public Use
  Company Number: NVSC2020BR265168

PATIENT
  Age: 56 Year
  Sex: Male

DRUGS (2)
  1. ENTRESTO [Suspect]
     Active Substance: SACUBITRIL\VALSARTAN
     Indication: CARDIAC FAILURE
     Dosage: UNK(STRENGTH:49/51MG,START DATE:MORE THAN 2 YEARS AGO)
     Route: 065
     Dates: end: 20200926
  2. ENTRESTO [Suspect]
     Active Substance: SACUBITRIL\VALSARTAN
     Dosage: UNK(DOSE:24/26MG)
     Route: 065

REACTIONS (11)
  - Disease complication [Unknown]
  - Therapeutic response decreased [Unknown]
  - Obesity [Fatal]
  - Renal disorder [Unknown]
  - Cardiogenic shock [Fatal]
  - Cardiac disorder [Unknown]
  - Atrioventricular block [Fatal]
  - Haemorrhage [Unknown]
  - Cardiac failure congestive [Fatal]
  - Chronic kidney disease [Fatal]
  - Haematochezia [Not Recovered/Not Resolved]

NARRATIVE: CASE EVENT DATE: 2019
